FAERS Safety Report 5322614-7 (Version None)
Quarter: 2007Q2

REPORT INFORMATION
  Report Type: 
  Country: None (occurrence: None)
  Receive Date: 20070511
  Receipt Date: 20070508
  Transmission Date: 20071010
  Serious: Yes (Death)
  Sender: FDA-Public Use
  Company Number: US-SANOFI-SYNTHELABO-F03200700096

PATIENT
  Sex: Male
  Weight: 90.7 kg

DRUGS (3)
  1. CAPECITABINE [Suspect]
     Dosage: DAYS 1-7, 15-20, 29-35
     Route: 048
     Dates: end: 20060607
  2. DOCETAXEL [Suspect]
     Route: 042
     Dates: start: 20060531, end: 20060531
  3. OXALIPLATIN [Suspect]
     Indication: OESOPHAGEAL CARCINOMA
     Route: 042
     Dates: start: 20060531, end: 20060531

REACTIONS (3)
  - DEATH [None]
  - RESPIRATORY FAILURE [None]
  - STAPHYLOCOCCAL INFECTION [None]
